FAERS Safety Report 10022524 (Version 4)
Quarter: 2014Q2

REPORT INFORMATION
  Report Type: Spontaneous
  Country: JP (occurrence: JP)
  Receive Date: 20140319
  Receipt Date: 20140523
  Transmission Date: 20141212
  Serious: Yes (Hospitalization, Other)
  Sender: FDA-Public Use
  Company Number: JP-DSJP-DSJ-2013-28560

PATIENT
  Sex: 0

DRUGS (10)
  1. OLMETEC [Suspect]
     Indication: HYPERTENSION
     Dosage: 10 MG, QD
     Route: 048
     Dates: start: 20131119, end: 20131218
  2. LIPITOR [Suspect]
     Indication: DYSLIPIDAEMIA
     Dosage: 10 MG, QD
     Route: 048
     Dates: start: 20131107, end: 20131218
  3. LIPITOR [Suspect]
     Indication: HYPERLIPIDAEMIA
  4. LANTUS                             /01483501/ [Concomitant]
     Indication: DIABETES MELLITUS
     Dosage: ??
     Route: 058
     Dates: start: 20131108
  5. BAYASPIRIN [Concomitant]
     Dosage: ??
     Route: 065
     Dates: end: 20131107
  6. BAYASPIRIN [Concomitant]
     Dosage: ??
     Dates: start: 20131109, end: 20131116
  7. NEXIUM CAPSULES [Suspect]
     Indication: ULCER
     Dosage: 10MG, DAILY
     Route: 048
     Dates: start: 20131107, end: 20131218
  8. PLAVIX                             /01220701/ [Suspect]
     Indication: CEREBRAL INFARCTION
     Dosage: 75 MG, QD
     Route: 048
     Dates: start: 20131107, end: 20131218
  9. METGLUCO [Suspect]
     Indication: DIABETES MELLITUS
     Dosage: 500 MG, BID
     Route: 048
     Dates: start: 20131125, end: 20131218
  10. ELCATONIN [Suspect]
     Indication: CERVICOBRACHIAL SYNDROME
     Dosage: 1 DF, UNK
     Route: 058
     Dates: start: 20131119, end: 20131213

REACTIONS (18)
  - White blood cell count decreased [Recovered/Resolved]
  - Neutrophil count decreased [Recovered/Resolved]
  - Basophil count increased [Recovering/Resolving]
  - Blood glucose increased [Unknown]
  - C-reactive protein increased [Recovering/Resolving]
  - Eosinophil count increased [Recovered/Resolved]
  - Blood triglycerides increased [Unknown]
  - Glycosylated haemoglobin increased [Unknown]
  - Blood albumin decreased [Unknown]
  - Blood cholesterol decreased [Unknown]
  - Haematocrit decreased [Recovering/Resolving]
  - Haemoglobin decreased [Recovering/Resolving]
  - Low density lipoprotein increased [Recovering/Resolving]
  - Low density lipoprotein decreased [Recovering/Resolving]
  - Monocyte count increased [Recovering/Resolving]
  - Platelet count increased [Unknown]
  - Protein total decreased [Unknown]
  - Blood potassium decreased [Recovering/Resolving]
